FAERS Safety Report 18586898 (Version 1)
Quarter: 2020Q4

REPORT INFORMATION
  Report Type: Report from Study
  Country: JP (occurrence: JP)
  Receive Date: 20201207
  Receipt Date: 20201207
  Transmission Date: 20210114
  Serious: Yes (Hospitalization)
  Sender: FDA-Public Use
  Company Number: JP-JNJFOC-20201203438

PATIENT
  Age: 49 Year
  Sex: Female

DRUGS (9)
  1. ADCIRCA [Suspect]
     Active Substance: TADALAFIL
     Indication: PULMONARY ARTERIAL HYPERTENSION
     Route: 048
     Dates: start: 20180112, end: 20180115
  2. PREDONINE [Concomitant]
     Active Substance: PREDNISOLONE
     Indication: SCLERODERMA
  3. PAROXETINE. [Concomitant]
     Active Substance: PAROXETINE
     Indication: PRODUCT USED FOR UNKNOWN INDICATION
     Route: 048
  4. OXYGEN. [Concomitant]
     Active Substance: OXYGEN
     Dosage: DOSE UNKNOWN
     Route: 055
  5. MACITENTAN [Suspect]
     Active Substance: MACITENTAN
     Indication: PULMONARY ARTERIAL HYPERTENSION
     Route: 048
     Dates: start: 20180105, end: 20180108
  6. CARELOAD LA [Concomitant]
     Active Substance: BERAPROST SODIUM
     Indication: SCLERODERMA
     Route: 048
     Dates: end: 20180125
  7. MACITENTAN [Suspect]
     Active Substance: MACITENTAN
     Route: 048
     Dates: start: 20180109, end: 20180129
  8. ADCIRCA [Suspect]
     Active Substance: TADALAFIL
     Route: 048
     Dates: start: 20180116, end: 20180125
  9. TACROLIMUS HYDRATE [Concomitant]
     Active Substance: TACROLIMUS
     Indication: SCLERODERMA
     Route: 048

REACTIONS (4)
  - Pleural effusion [Recovered/Resolved]
  - Pericardial effusion [Recovered/Resolved]
  - Cardiac failure [Recovered/Resolved]
  - Congestive hepatopathy [Recovered/Resolved]

NARRATIVE: CASE EVENT DATE: 20180130
